FAERS Safety Report 17354786 (Version 3)
Quarter: 2021Q3

REPORT INFORMATION
  Report Type: Spontaneous
  Country: JP (occurrence: JP)
  Receive Date: 20200131
  Receipt Date: 20210708
  Transmission Date: 20211014
  Serious: Yes (Other)
  Sender: FDA-Public Use
  Company Number: NVSJ2020JP001299

PATIENT
  Age: 41 Year
  Sex: Male

DRUGS (1)
  1. IMUSERA [Suspect]
     Active Substance: FINGOLIMOD HYDROCHLORIDE
     Indication: RELAPSING-REMITTING MULTIPLE SCLEROSIS
     Dosage: UNK
     Route: 065

REACTIONS (10)
  - Decreased appetite [Unknown]
  - Immune reconstitution inflammatory syndrome [Unknown]
  - Lymphocyte count decreased [Recovering/Resolving]
  - Pyrexia [Unknown]
  - Headache [Unknown]
  - Hiccups [Unknown]
  - Meningitis cryptococcal [Recovering/Resolving]
  - Encephalopathy [Recovering/Resolving]
  - T-lymphocyte count decreased [Recovering/Resolving]
  - Nuchal rigidity [Unknown]
